FAERS Safety Report 9840579 (Version 1)
Quarter: 2014Q1

REPORT INFORMATION
  Report Type: Spontaneous
  Country: US (occurrence: US)
  Receive Date: 20140124
  Receipt Date: 20140124
  Transmission Date: 20141002
  Serious: No
  Sender: FDA-Public Use
  Company Number: US-PFIZER INC-2014020096

PATIENT
  Age: 67 Year
  Sex: Female

DRUGS (11)
  1. CELEBREX [Suspect]
     Dosage: 200 UNK, QD
  2. LYRICA [Suspect]
     Dosage: 150 MG, 1 TIMES A DAY
  3. METAXALONE [Suspect]
     Dosage: UNK
  4. ULTRAM [Suspect]
     Dosage: UNK
  5. ASPIRIN [Suspect]
     Dosage: UNK
  6. CODEINE [Suspect]
     Dosage: UNK
  7. AMBIEN [Suspect]
     Dosage: UNK
  8. VICODIN [Suspect]
     Dosage: UNK
  9. DYAZIDE [Suspect]
     Dosage: UNK
  10. CYMBALTA [Suspect]
     Dosage: UNK
  11. VIVELLE-DOT [Suspect]
     Dosage: UNK

REACTIONS (1)
  - Drug hypersensitivity [Unknown]
